FAERS Safety Report 6820472-2 (Version None)
Quarter: 2010Q3

REPORT INFORMATION
  Report Type: 
  Country: None (occurrence: None)
  Receive Date: 20100707
  Receipt Date: 20100601
  Transmission Date: 20110219
  Serious: Yes (Hospitalization)
  Sender: FDA-Public Use
  Company Number: US-BIOGENIDEC-2008BI025768

PATIENT
  Age: 56 Year
  Sex: Female

DRUGS (2)
  1. AVONEX [Suspect]
     Indication: MULTIPLE SCLEROSIS
     Route: 030
     Dates: start: 20010831, end: 20070115
  2. AVONEX [Suspect]
     Route: 030
     Dates: start: 20080918

REACTIONS (2)
  - CEREBRAL THROMBOSIS [None]
  - MIGRAINE [None]
